FAERS Safety Report 6686200-9 (Version None)
Quarter: 2010Q2

REPORT INFORMATION
  Report Type: 
  Country: None (occurrence: None)
  Receive Date: 20100419
  Receipt Date: 20100408
  Transmission Date: 20101027
  Serious: Yes (Hospitalization, Other)
  Sender: FDA-Public Use
  Company Number: JP-ASTRAZENECA-2010SE16824

PATIENT
  Age: 64 Year
  Sex: Female

DRUGS (1)
  1. MEROPEN [Suspect]
     Indication: SEPSIS
     Route: 042
     Dates: start: 20100113, end: 20100117

REACTIONS (8)
  - DEPRESSED LEVEL OF CONSCIOUSNESS [None]
  - DISORIENTATION [None]
  - DYSKINESIA [None]
  - HYPOTENSION [None]
  - OVERDOSE [None]
  - TREMOR [None]
  - VOMITING [None]
  - WHITE BLOOD CELL COUNT DECREASED [None]
